FAERS Safety Report 20235662 (Version 1)
Quarter: 2021Q4

REPORT INFORMATION
  Report Type: Report from Study
  Country: GR (occurrence: GR)
  Receive Date: 20211228
  Receipt Date: 20211228
  Transmission Date: 20220303
  Serious: Yes (Hospitalization)
  Sender: FDA-Public Use
  Company Number: GR-ABBVIE-21K-066-4212836-00

PATIENT
  Age: 79 Year
  Sex: Male
  Weight: 56 kg

DRUGS (5)
  1. CARBIDOPA\LEVODOPA [Suspect]
     Active Substance: CARBIDOPA\LEVODOPA
     Indication: Parkinson^s disease
     Dosage: MORNING DOSE: 11.0ML; CONTINUOUS RATE: 2.3ML/H; EXTRA DOSE: 1.2ML
     Route: 050
     Dates: start: 20210719, end: 20211223
  2. CARBIDOPA\LEVODOPA [Suspect]
     Active Substance: CARBIDOPA\LEVODOPA
     Dosage: MORNING DOSE: 11.0ML; CONTINUOUS RATE: 2.0ML/H; EXTRA DOSE: 1.2ML
     Route: 050
     Dates: start: 20211223
  3. SIMVASTATIN [Concomitant]
     Active Substance: SIMVASTATIN
     Indication: Hypercholesterolaemia
     Dosage: 1/2 OF UNKNOWN FORM STRENGTH
     Route: 048
  4. RAFUSTER [Concomitant]
     Indication: Prostatic disorder
     Dosage: 0.5MG
     Route: 048
  5. ALFURAL [Concomitant]
     Indication: Prostatic disorder
     Route: 048

REACTIONS (3)
  - Surgery [Not Recovered/Not Resolved]
  - Hallucination [Not Recovered/Not Resolved]
  - Hyperkinesia [Not Recovered/Not Resolved]

NARRATIVE: CASE EVENT DATE: 20211201
